FAERS Safety Report 6784719-3 (Version None)
Quarter: 2010Q2

REPORT INFORMATION
  Report Type: 
  Country: None (occurrence: None)
  Receive Date: 20100622
  Receipt Date: 20100614
  Transmission Date: 20101027
  Serious: Yes (Other)
  Sender: FDA-Public Use
  Company Number: US-AMGEN-KDC418275

PATIENT
  Age: 63 Year
  Sex: Male
  Weight: 114.7 kg

DRUGS (7)
  1. NEULASTA [Suspect]
     Indication: CHEMOTHERAPY
     Route: 058
     Dates: start: 20071215
  2. VELCADE [Suspect]
     Route: 040
     Dates: start: 20071215
  3. RITUXIMAB [Suspect]
     Route: 042
     Dates: start: 20071215
  4. CYCLOPHOSPHAMIDE [Suspect]
     Route: 042
     Dates: start: 20071215
  5. DOXORUBICIN HCL [Suspect]
     Route: 041
     Dates: start: 20071215
  6. VINCRISTINE [Suspect]
     Route: 040
     Dates: start: 20071215
  7. DEXAMETASON [Suspect]
     Route: 048
     Dates: start: 20071215

REACTIONS (3)
  - ALOPECIA [None]
  - OEDEMA PERIPHERAL [None]
  - PERIPHERAL MOTOR NEUROPATHY [None]
